FAERS Safety Report 11968380 (Version 1)
Quarter: 2016Q1

REPORT INFORMATION
  Report Type: Spontaneous
  Country: FR (occurrence: FR)
  Receive Date: 20160128
  Receipt Date: 20160128
  Transmission Date: 20160526
  Serious: Yes (Life-Threatening)
  Sender: FDA-Public Use
  Company Number: FR-ROCHE-1700506

PATIENT
  Age: 81 Year
  Sex: Male

DRUGS (2)
  1. MABTHERA [Suspect]
     Active Substance: RITUXIMAB
     Indication: NON-HODGKIN^S LYMPHOMA
     Route: 041
     Dates: start: 20151123
  2. MABTHERA [Suspect]
     Active Substance: RITUXIMAB
     Route: 041
     Dates: start: 20151221

REACTIONS (5)
  - Pyrexia [Recovered/Resolved]
  - Pulmonary alveolar haemorrhage [Recovered/Resolved]
  - Oxygen saturation decreased [Recovered/Resolved with Sequelae]
  - Anaphylactic reaction [Recovered/Resolved]
  - Tachypnoea [Recovered/Resolved with Sequelae]

NARRATIVE: CASE EVENT DATE: 20151221
